FAERS Safety Report 20199494 (Version 1)
Quarter: 2021Q4

REPORT INFORMATION
  Report Type: Spontaneous
  Country: US (occurrence: US)
  Receive Date: 20211217
  Receipt Date: 20211217
  Transmission Date: 20220303
  Serious: No
  Sender: FDA-Public Use
  Company Number: US-PACIRA-2021000282

PATIENT

DRUGS (1)
  1. EXPAREL [Suspect]
     Active Substance: BUPIVACAINE
     Dosage: NOT PROVIDED
     Route: 065
     Dates: start: 20210427, end: 20210427

REACTIONS (1)
  - Petechiae [Unknown]
